FAERS Safety Report 5643782-3 (Version None)
Quarter: 2008Q1

REPORT INFORMATION
  Report Type: 
  Country: None (occurrence: None)
  Receive Date: 20080226
  Receipt Date: 20080213
  Transmission Date: 20080703
  Serious: Yes (Other)
  Sender: FDA-Public Use
  Company Number: 2008AP000444

PATIENT
  Age: 71 Year
  Sex: Female

DRUGS (1)
  1. METFORMIN HCL [Suspect]
     Indication: DIABETES MELLITUS
     Dosage: 1 TAB; QD; PO
     Route: 048
     Dates: start: 20031001, end: 20031101

REACTIONS (3)
  - ACANTHOSIS NIGRICANS [None]
  - DERMATITIS ATOPIC [None]
  - LYMPHADENOPATHY [None]
